FAERS Safety Report 9209501 (Version 6)
Quarter: 2014Q2

REPORT INFORMATION
  Report Type: Report from Study
  Country: US (occurrence: US)
  Receive Date: 20130404
  Receipt Date: 20140625
  Transmission Date: 20141212
  Serious: Yes (Hospitalization)
  Sender: FDA-Public Use
  Company Number: US-SANOFI-AVENTIS-2013SA029803

PATIENT
  Age: 82 Year
  Sex: Male
  Weight: 82.1 kg

DRUGS (29)
  1. DOCETAXEL [Suspect]
     Indication: PROSTATE CANCER METASTATIC
     Route: 042
     Dates: start: 20120607, end: 20120607
  2. DOCETAXEL [Suspect]
     Indication: PROSTATE CANCER METASTATIC
     Route: 042
     Dates: start: 20130222, end: 20130222
  3. PREDNISONE [Suspect]
     Indication: PROSTATE CANCER METASTATIC
     Route: 048
     Dates: start: 20120607, end: 20130313
  4. CHOLECALCIFEROL [Concomitant]
     Indication: PROPHYLAXIS
     Dosage: DOSE:1000 UNIT(S)
     Route: 048
     Dates: start: 20101115
  5. FERROUS SULFATE [Concomitant]
     Indication: PROPHYLAXIS
     Route: 048
     Dates: start: 20111024
  6. FOLIC ACID [Concomitant]
     Indication: PROPHYLAXIS
     Route: 048
     Dates: start: 20111024
  7. GLYBURIDE [Concomitant]
     Indication: PROPHYLAXIS
     Route: 048
     Dates: start: 20101106
  8. HYDROCHLOROTHIAZIDE [Concomitant]
     Indication: PROPHYLAXIS
     Route: 048
     Dates: start: 20011128
  9. GUAIFENESIN [Concomitant]
     Indication: PROPHYLAXIS
     Route: 048
     Dates: start: 20090227
  10. LOPERAMIDE [Concomitant]
     Indication: PROPHYLAXIS
     Route: 048
     Dates: start: 20120607
  11. METFORMIN [Concomitant]
     Indication: PROPHYLAXIS
     Route: 048
     Dates: start: 20080708
  12. METOCLOPRAMIDE HYDROCHLORIDE [Concomitant]
     Indication: PROPHYLAXIS
     Route: 048
     Dates: start: 20120607
  13. POTASSIUM CHLORIDE [Concomitant]
     Indication: PROPHYLAXIS
     Route: 048
     Dates: start: 20080708
  14. ZOMETA [Concomitant]
     Indication: PROPHYLAXIS
     Route: 041
     Dates: start: 20110128
  15. OXYCODONE [Concomitant]
     Route: 048
     Dates: start: 20120531
  16. PEGFILGRASTIM [Concomitant]
     Indication: PROPHYLAXIS
     Route: 058
     Dates: start: 20120628
  17. ZOLADEX [Concomitant]
     Indication: PROPHYLAXIS
     Route: 058
     Dates: start: 20041208
  18. CIPROFLOXACIN [Concomitant]
     Route: 048
     Dates: start: 20130215
  19. LEUPRORELIN ACETATE [Concomitant]
     Indication: PROPHYLAXIS
     Route: 058
     Dates: start: 20041208
  20. PERCOCET [Concomitant]
     Indication: PAIN
     Route: 048
  21. MULTIVITAMINS [Concomitant]
     Route: 048
  22. PEPCID [Concomitant]
     Route: 048
  23. CLOTRIMAZOLE [Concomitant]
  24. IBUPROFEN [Concomitant]
     Route: 048
  25. NOVOLIN [Concomitant]
  26. IOHEXOL [Concomitant]
  27. PIPERACILLIN/TAZOBACTAM [Concomitant]
     Route: 042
  28. POTASSIUM CHLORIDE [Concomitant]
     Route: 048
  29. SODIUM CHLORIDE [Concomitant]
     Route: 042

REACTIONS (2)
  - Leukocytosis [Recovered/Resolved]
  - Pulmonary embolism [Recovered/Resolved]
